FAERS Safety Report 9262506 (Version 1)
Quarter: 2013Q2

REPORT INFORMATION
  Report Type: Report from Study
  Country: US (occurrence: US)
  Receive Date: 20130430
  Receipt Date: 20130430
  Transmission Date: 20140414
  Serious: Yes (Other)
  Sender: FDA-Public Use
  Company Number: US-ROCHE-1214272

PATIENT
  Age: 24 Year
  Sex: Female
  Weight: 162.8 kg

DRUGS (4)
  1. PEGASYS [Suspect]
     Indication: CHRONIC HEPATITIS C
     Route: 058
     Dates: start: 20130319
  2. RIBAVIRIN [Suspect]
     Indication: CHRONIC HEPATITIS C
     Dosage: 3 TABLETS TWO TIMES A DAY
     Route: 048
     Dates: start: 20130319
  3. RIBAVIRIN [Suspect]
     Route: 048
     Dates: start: 20130319
  4. TELAPREVIR [Suspect]
     Indication: CHRONIC HEPATITIS C
     Dosage: 2 TABLETS 3 TIMES A DAY
     Route: 048
     Dates: start: 20130319

REACTIONS (2)
  - Skin exfoliation [Unknown]
  - Blister [Recovered/Resolved]
